FAERS Safety Report 5715556-6 (Version None)
Quarter: 2008Q2

REPORT INFORMATION
  Report Type: 
  Country: None (occurrence: None)
  Receive Date: 20080422
  Receipt Date: 20080324
  Transmission Date: 20081010
  Serious: Yes (Other)
  Sender: FDA-Public Use
  Company Number: RENA-1000053

PATIENT
  Age: 36 Year
  Sex: Male
  Weight: 137.1 kg

DRUGS (11)
  1. RENAGEL [Suspect]
     Indication: DRUG USE FOR UNKNOWN INDICATION
     Dosage: 32 G, TID, ORAL
     Route: 048
  2. PHOSLO [Concomitant]
  3. FOSRENOL (LANTHANUM CARBONATE), 1000 MG [Concomitant]
  4. LORTAB [Concomitant]
  5. PLAVIX [Concomitant]
  6. COUMADIN [Concomitant]
  7. TOPROL-XL [Concomitant]
  8. LASIX [Concomitant]
  9. LEVOTHYROXINE SODIUM [Concomitant]
  10. LIPITOR [Concomitant]
  11. NEPHROCAPS (FOLIC ACID, VITAMINS NOS) [Concomitant]

REACTIONS (1)
  - OBESITY [None]
